FAERS Safety Report 18430571 (Version 1)
Quarter: 2020Q4

REPORT INFORMATION
  Report Type: Spontaneous
  Country: CZ (occurrence: CZ)
  Receive Date: 20201027
  Receipt Date: 20201027
  Transmission Date: 20210114
  Serious: Yes (Disabling)
  Sender: FDA-Public Use
  Company Number: CZ-ROCHE-2700025

PATIENT
  Age: 37 Year
  Sex: Male

DRUGS (7)
  1. KAPIDIN [Concomitant]
     Active Substance: LERCANIDIPINE HYDROCHLORIDE
     Dosage: DOSAGE 1-0-0
  2. VEROSPIRON [Concomitant]
     Active Substance: SPIRONOLACTONE
     Dosage: DOSAGE 1-0-0
  3. ANOPYRIN [Concomitant]
     Active Substance: ASPIRIN
     Dosage: DOSAGE -1-0-0
  4. NOVALGIN (CZECH REPUBLIC) [Concomitant]
     Dosage: DOSAGE 1-1-1
  5. PEGASYS [Suspect]
     Active Substance: PEGINTERFERON ALFA-2A
     Indication: POLYCYTHAEMIA VERA
     Dosage: DOSE TITRATION FROM 15/AUG/2020 GRADUALLY INCREASING BY 45UG / WEEK, INITIAL DOSE 45UG ONCE A WEEK,
     Route: 058
     Dates: start: 20200815
  6. INDAPAMIDE. [Concomitant]
     Active Substance: INDAPAMIDE
     Dosage: DOSAGE 1/2-0-0
  7. CARZAP [Concomitant]
     Dosage: DOSAGE 1-0-0

REACTIONS (11)
  - Impaired work ability [Not Recovered/Not Resolved]
  - Weight decreased [Not Recovered/Not Resolved]
  - Fatigue [Not Recovered/Not Resolved]
  - Pyrexia [Not Recovered/Not Resolved]
  - Hypertension [Not Recovered/Not Resolved]
  - Off label use [Unknown]
  - Headache [Not Recovered/Not Resolved]
  - Mood altered [Not Recovered/Not Resolved]
  - Agitation [Not Recovered/Not Resolved]
  - Haematospermia [Not Recovered/Not Resolved]
  - Intentional product use issue [Unknown]

NARRATIVE: CASE EVENT DATE: 20200815
